FAERS Safety Report 10195965 (Version 1)
Quarter: 2014Q2

REPORT INFORMATION
  Report Type: Report from Study
  Country: CA (occurrence: CA)
  Receive Date: 20140527
  Receipt Date: 20140527
  Transmission Date: 20141212
  Serious: Yes (Hospitalization, Other)
  Sender: FDA-Public Use
  Company Number: PHHY2014CA062187

PATIENT
  Age: 67 Year
  Sex: Female

DRUGS (2)
  1. AFINITOR [Suspect]
     Indication: CARCINOID TUMOUR
     Dosage: 5 MG, DAILY
     Route: 048
     Dates: start: 20140420
  2. SANDOSTATIN [Concomitant]
     Indication: CARCINOID TUMOUR
     Dosage: 40 MG, EVERY 03 WEEKS
     Route: 030
     Dates: start: 20121020

REACTIONS (11)
  - Mental disorder [Unknown]
  - Thinking abnormal [Unknown]
  - Functional gastrointestinal disorder [Not Recovered/Not Resolved]
  - Obstruction gastric [Unknown]
  - Gastric dilatation [Unknown]
  - Abdominal discomfort [Unknown]
  - Vomiting [Unknown]
  - Blood pressure systolic increased [Unknown]
  - Weight decreased [Unknown]
  - Abdominal pain [Unknown]
  - Pain [Unknown]
